FAERS Safety Report 12946913 (Version 6)
Quarter: 2017Q1

REPORT INFORMATION
  Report Type: Spontaneous
  Country: US (occurrence: US)
  Receive Date: 20161116
  Receipt Date: 20170309
  Transmission Date: 20170428
  Serious: Yes (Other)
  Sender: FDA-Public Use
  Company Number: US-PFIZER INC-2016527107

PATIENT
  Age: 42 Year
  Sex: Female
  Weight: 80.27 kg

DRUGS (8)
  1. IBRANCE [Suspect]
     Active Substance: PALBOCICLIB
     Indication: BREAST CANCER METASTATIC
     Dosage: 125 MG, CYCLIC, (DAILY FOR 21 DAYS; STOP FOR 7)
     Route: 048
     Dates: start: 20161027
  2. IBRANCE [Suspect]
     Active Substance: PALBOCICLIB
     Dosage: 125 MG, CYCLIC, (D 1-21 Q 28 DAYS)
     Route: 048
     Dates: start: 20161027
  3. IBRANCE [Suspect]
     Active Substance: PALBOCICLIB
     Dosage: 125 MG, CYCLIC (DAILY D 1-21 EVERY 28D)
     Route: 048
  4. FASLODEX [Concomitant]
     Active Substance: FULVESTRANT
     Dosage: UNK
     Dates: start: 20160925
  5. FASLODEX [Concomitant]
     Active Substance: FULVESTRANT
     Indication: BREAST CANCER METASTATIC
     Dosage: UNK
     Dates: start: 20160914
  6. IBRANCE [Suspect]
     Active Substance: PALBOCICLIB
     Dosage: UNK
     Dates: start: 20170201, end: 20170205
  7. FASLODEX [Concomitant]
     Active Substance: FULVESTRANT
     Dosage: UNK
     Dates: start: 20170104
  8. IBRANCE [Suspect]
     Active Substance: PALBOCICLIB
     Dosage: 100 MG, CYCLIC (D 1-21 Q 28 DAYS)
     Route: 048
     Dates: start: 20161027

REACTIONS (13)
  - Nasopharyngitis [Recovered/Resolved]
  - Oropharyngeal pain [Recovered/Resolved]
  - Asthenia [Unknown]
  - Pain [Unknown]
  - Bone marrow failure [Recovered/Resolved]
  - Feeling abnormal [Unknown]
  - Neoplasm progression [Unknown]
  - Somnolence [Unknown]
  - Fatigue [Unknown]
  - Neutropenia [Recovered/Resolved]
  - Headache [Unknown]
  - Ear pain [Recovered/Resolved]
  - Malaise [Unknown]

NARRATIVE: CASE EVENT DATE: 20161115
